FAERS Safety Report 20988770 (Version 18)
Quarter: 2024Q1

REPORT INFORMATION
  Report Type: Report from Study
  Country: US (occurrence: US)
  Receive Date: 20220621
  Receipt Date: 20240219
  Transmission Date: 20240410
  Serious: Yes (Other)
  Sender: FDA-Public Use
  Company Number: US-BoehringerIngelheim-2022-BI-169630

PATIENT
  Age: 78 Year
  Sex: Male

DRUGS (4)
  1. OFEV [Suspect]
     Active Substance: NINTEDANIB
     Indication: Idiopathic pulmonary fibrosis
     Route: 048
     Dates: start: 20220414
  2. OFEV [Suspect]
     Active Substance: NINTEDANIB
     Route: 048
  3. ELIQUIS [Concomitant]
     Active Substance: APIXABAN
  4. ELIQUIS [Concomitant]
     Active Substance: APIXABAN
     Indication: Product used for unknown indication

REACTIONS (34)
  - Idiopathic pulmonary fibrosis [Recovered/Resolved]
  - Retinal artery occlusion [Recovered/Resolved]
  - Diarrhoea [Recovered/Resolved]
  - Nausea [Recovered/Resolved]
  - Gastrointestinal disorder [Recovered/Resolved]
  - Abdominal distension [Recovered/Resolved]
  - Wheezing [Not Recovered/Not Resolved]
  - Dyspnoea [Not Recovered/Not Resolved]
  - Abdominal discomfort [Recovered/Resolved]
  - Hypersensitivity [Unknown]
  - Upper-airway cough syndrome [Unknown]
  - Cough [Not Recovered/Not Resolved]
  - Insomnia [Unknown]
  - Abdominal distension [Recovered/Resolved]
  - Flatulence [Recovered/Resolved]
  - Abdominal pain upper [Recovered/Resolved]
  - Abdominal discomfort [Recovered/Resolved]
  - Atrial fibrillation [Unknown]
  - Abdominal distension [Recovered/Resolved]
  - Flatulence [Recovered/Resolved]
  - Dyspnoea exertional [Recovering/Resolving]
  - Malaise [Unknown]
  - Abdominal pain upper [Recovered/Resolved]
  - Eye haemorrhage [Unknown]
  - Visual impairment [Not Recovered/Not Resolved]
  - Frequent bowel movements [Not Recovered/Not Resolved]
  - Abdominal pain upper [Recovered/Resolved]
  - Paranasal sinus hypersecretion [Unknown]
  - Secretion discharge [Unknown]
  - Drug intolerance [Unknown]
  - Discomfort [Recovered/Resolved]
  - Flatulence [Recovered/Resolved]
  - Abdominal distension [Recovered/Resolved]
  - Diarrhoea [Recovered/Resolved]

NARRATIVE: CASE EVENT DATE: 20230103
